FAERS Safety Report 10382039 (Version 1)
Quarter: 2014Q1

REPORT INFORMATION
  Report Type: Spontaneous
  Country: US (occurrence: None)
  Receive Date: 20140306
  Receipt Date: 20140306
  Transmission Date: 20141002
  Serious: Yes (Hospitalization, Other)
  Sender: FDA-Public Use
  Company Number: 163-21880-13080677

PATIENT
  Age: 66 Year
  Sex: Male
  Weight: 78.9 kg

DRUGS (14)
  1. REVLIMID (LENALIDOMIDE) (5 MILLIGRAM, CAPSULES) [Suspect]
     Indication: ACUTE MYELOID LEUKAEMIA
     Route: 048
     Dates: start: 200711, end: 201002
  2. VIDAZA (AZACITIDINE) (INJECTION) [Suspect]
     Indication: ACUTE MYELOID LEUKAEMIA
     Dosage: 150 MG, 5 IN 28 D, IV
     Route: 042
     Dates: start: 20130624, end: 20130811
  3. HEPARIN FLUSH (HEPARIN SODIUM) [Concomitant]
  4. LASIX (FUROSEMIDE) [Concomitant]
  5. TUMS (CALCIUM CARBONATE) [Concomitant]
  6. CALCIUM [Concomitant]
  7. VITAMIN D (ERGOCALCIFEROL) [Concomitant]
  8. ACYCLOVIR (ACICLOVIR) (ACICLOVIR) [Concomitant]
  9. CIPRO (CIPROFLOXACIN) [Concomitant]
  10. FINASTERIDE [Concomitant]
  11. MAGNESIUM OXIDE [Concomitant]
  12. MULTIVITAMINS [Concomitant]
  13. PANTOPRAZOLE [Concomitant]
  14. AMBIEN (ZOLPIDEM TARTRATE) [Concomitant]

REACTIONS (3)
  - Febrile neutropenia [None]
  - Deep vein thrombosis [None]
  - Pancytopenia [None]
